FAERS Safety Report 8016505 (Version 2)
Quarter: 2012Q4

REPORT INFORMATION
  Report Type: 
  Country: JP (occurrence: JP)
  Receive Date: 20110630
  Receipt Date: 20121217
  Transmission Date: 20130627
  Serious: Yes (Other)
  Sender: FDA-Public Use
  Company Number: JP-PFIZER INC-2011144750

PATIENT
  Age: 78 Year
  Sex: Male

DRUGS (4)
  1. LYRICA [Suspect]
     Indication: DIABETIC PERIPHERAL NEUROPATHIC PAIN
     Dosage: 75 mg/day
     Route: 048
     Dates: start: 20110301, end: 20110330
  2. LYRICA [Suspect]
     Indication: LUMBAR SPINAL STENOSIS
  3. ARICEPT [Concomitant]
     Indication: DEMENTIA
     Dosage: 5 mg/day
     Route: 048
  4. CARDENALIN [Concomitant]
     Dosage: 2 mg, a day
     Route: 048

REACTIONS (2)
  - Dementia [Recovered/Resolved]
  - Increased appetite [Recovered/Resolved]
